FAERS Safety Report 22901725 (Version 2)
Quarter: 2023Q4

REPORT INFORMATION
  Report Type: Spontaneous
  Country: AU (occurrence: AU)
  Receive Date: 20230904
  Receipt Date: 20231020
  Transmission Date: 20240109
  Serious: Yes (Hospitalization, Other)
  Sender: FDA-Public Use
  Company Number: AU-Gedeon Richter Plc.-2023_GR_007924

PATIENT
  Age: 35 Year
  Sex: Male

DRUGS (18)
  1. CARIPRAZINE [Suspect]
     Active Substance: CARIPRAZINE
     Indication: Suicidal ideation
     Route: 048
  2. VALPROATE SODIUM [Suspect]
     Active Substance: VALPROATE SODIUM
     Indication: Suicidal ideation
     Dosage: 300 MG, IN THE MORNING, 1500MG AT NIGHT
     Route: 065
  3. ZIPRASIDONE [Suspect]
     Active Substance: ZIPRASIDONE
     Indication: Suicidal ideation
     Dosage: 80 MG, QD
     Route: 065
  4. ZUCLOPENTHIXOL ACETATE [Suspect]
     Active Substance: ZUCLOPENTHIXOL ACETATE
     Indication: Suicidal ideation
     Dosage: 20 MG, BID
     Route: 065
  5. ZOPICLONE [Suspect]
     Active Substance: ZOPICLONE
     Indication: Suicidal ideation
     Dosage: 15 MG, QD (AT NIGHT)
     Route: 065
  6. VENLAFAXINE HYDROCHLORIDE [Suspect]
     Active Substance: VENLAFAXINE HYDROCHLORIDE
     Indication: Suicidal ideation
     Dosage: 375 MG, QD (AT NIGHT)
     Route: 065
  7. BREXPIPRAZOLE [Suspect]
     Active Substance: BREXPIPRAZOLE
     Indication: Suicidal ideation
     Dosage: 4 MG, QD
     Route: 048
  8. RISPERIDONE [Suspect]
     Active Substance: RISPERIDONE
     Indication: Suicidal ideation
     Route: 065
  9. OLANZAPINE [Suspect]
     Active Substance: OLANZAPINE
     Indication: Product used for unknown indication
     Route: 065
  10. ACETAMINOPHEN [Suspect]
     Active Substance: ACETAMINOPHEN
     Indication: Suicidal ideation
     Dosage: 2 G
     Route: 065
  11. AMISULPRIDE [Suspect]
     Active Substance: AMISULPRIDE
     Indication: Hyperprolactinaemia
     Dosage: 400 MG
     Route: 065
  12. ARIPIPRAZOLE [Suspect]
     Active Substance: ARIPIPRAZOLE
     Indication: Suicidal ideation
     Dosage: 30MG IN THE MORNING
     Route: 048
  13. CLOZAPINE [Suspect]
     Active Substance: CLOZAPINE
     Indication: Suicidal ideation
     Route: 065
  14. CHLORPROMAZINE HYDROCHLORIDE [Suspect]
     Active Substance: CHLORPROMAZINE HYDROCHLORIDE
     Indication: Suicidal ideation
     Route: 065
  15. REXULTI [Suspect]
     Active Substance: BREXPIPRAZOLE
     Indication: Suicidal ideation
     Route: 065
  16. QUETIAPINE [Suspect]
     Active Substance: QUETIAPINE
     Indication: Suicidal ideation
     Dosage: 400 MG, QD (AT NIGHT)
     Route: 065
  17. QUETIAPINE [Suspect]
     Active Substance: QUETIAPINE
     Indication: Suicidal ideation
     Dosage: 800MG, AT NIGHT
     Route: 065
  18. DIAZEPAM [Suspect]
     Active Substance: DIAZEPAM
     Indication: Suicidal ideation
     Dosage: 30 MG
     Route: 065

REACTIONS (32)
  - Hallucinations, mixed [Unknown]
  - Inappropriate schedule of product administration [Unknown]
  - Psychotic disorder [Unknown]
  - Social anxiety disorder [Unknown]
  - Paranoia [Recovered/Resolved]
  - Troponin increased [Unknown]
  - Intracranial pressure increased [Unknown]
  - Persecutory delusion [Not Recovered/Not Resolved]
  - Alcohol abuse [Unknown]
  - Product use in unapproved indication [Unknown]
  - Tachycardia [Unknown]
  - Orthostatic hypotension [Unknown]
  - Schizoaffective disorder [Recovered/Resolved]
  - Antipsychotic drug level increased [Unknown]
  - Delusion [Unknown]
  - Malaise [Unknown]
  - Drug ineffective for unapproved indication [Unknown]
  - Chest discomfort [Unknown]
  - Gynaecomastia [Unknown]
  - Spasmodic dysphonia [Unknown]
  - Hallucination, auditory [Not Recovered/Not Resolved]
  - Intentional self-injury [Unknown]
  - Extrapyramidal disorder [Unknown]
  - C-reactive protein increased [Unknown]
  - Spasmodic dysphonia [Unknown]
  - Overdose [Unknown]
  - Hallucination, tactile [Recovered/Resolved]
  - Hyperhidrosis [Unknown]
  - Drug ineffective [Unknown]
  - Myocarditis [Unknown]
  - Hallucination, visual [Recovered/Resolved]
  - White blood cell count increased [Unknown]

NARRATIVE: CASE EVENT DATE: 20220927
